FAERS Safety Report 6154357-4 (Version None)
Quarter: 2009Q2

REPORT INFORMATION
  Report Type: 
  Country: None (occurrence: None)
  Receive Date: 20090414
  Receipt Date: 20090407
  Transmission Date: 20091009
  Serious: Yes (Other)
  Sender: FDA-Public Use
  Company Number: PHHY2009SE13136

PATIENT
  Sex: Female

DRUGS (2)
  1. STARLIX [Suspect]
     Dosage: 60 MG
  2. METFORMIN HCL [Concomitant]

REACTIONS (3)
  - CHILLS [None]
  - HYPOGLYCAEMIA [None]
  - SYNCOPE [None]
